FAERS Safety Report 9686150 (Version 1)
Quarter: 2013Q4

REPORT INFORMATION
  Report Type: Spontaneous
  Country: US (occurrence: US)
  Receive Date: 20131113
  Receipt Date: 20131113
  Transmission Date: 20140711
  Serious: No
  Sender: FDA-Public Use
  Company Number: US-BAYER-2013-133303

PATIENT
  Age: 50 Year
  Sex: Male

DRUGS (6)
  1. STAXYN (FDT/ODT) [Suspect]
     Indication: ERECTILE DYSFUNCTION
     Dosage: 10 MG, UNK
     Route: 048
     Dates: start: 201310
  2. COREG [Concomitant]
     Dosage: UNK UNK, BID
  3. ZESTRIL [Concomitant]
     Dosage: UNK UNK, QD
  4. ASPIRIN [Concomitant]
     Dosage: UNK UNK, QD
  5. PLAVIX [Concomitant]
     Dosage: UNK UNK, QD
  6. ZOCOR [Concomitant]
     Dosage: UNK UNK, QD

REACTIONS (4)
  - Abnormal sleep-related event [Unknown]
  - Wrong technique in drug usage process [None]
  - Drug ineffective [None]
  - Sleep disorder [Unknown]
